FAERS Safety Report 7640253-X (Version None)
Quarter: 2011Q3

REPORT INFORMATION
  Report Type: 
  Country: None (occurrence: None)
  Receive Date: 20110728
  Receipt Date: 20110628
  Transmission Date: 20111222
  Serious: No
  Sender: FDA-Public Use
  Company Number: US-BAYER-2011-057882

PATIENT
  Sex: Male

DRUGS (1)
  1. ALEVE (CAPLET) [Suspect]
     Indication: BACK PAIN

REACTIONS (3)
  - BACK PAIN [None]
  - NO ADVERSE EVENT [None]
  - SOMNOLENCE [None]
